FAERS Safety Report 20375775 (Version 1)
Quarter: 2022Q1

REPORT INFORMATION
  Report Type: Spontaneous
  Country: JP (occurrence: None)
  Receive Date: 20220125
  Receipt Date: 20220125
  Transmission Date: 20220423
  Serious: Yes (Hospitalization)
  Sender: FDA-Public Use
  Company Number: 2022A035163

PATIENT
  Sex: Female

DRUGS (1)
  1. CRESTOR [Suspect]
     Active Substance: ROSUVASTATIN CALCIUM
     Indication: Blood cholesterol increased
     Dosage: DOSE UNKNOWN
     Route: 048

REACTIONS (3)
  - Colitis ischaemic [Unknown]
  - Constipation [Unknown]
  - Cough variant asthma [Unknown]

NARRATIVE: CASE EVENT DATE: 20210801
